FAERS Safety Report 24162487 (Version 3)
Quarter: 2024Q3

REPORT INFORMATION
  Report Type: Spontaneous
  Country: FR (occurrence: FR)
  Receive Date: 20240801
  Receipt Date: 20240923
  Transmission Date: 20241017
  Serious: No
  Sender: PFIZER
  Company Number: FR-PFIZER INC-202400218570

PATIENT
  Age: 12 Month
  Sex: Male
  Weight: 9 kg

DRUGS (2)
  1. NEISVAC-C [Suspect]
     Active Substance: MENINGOCOCCAL POLYSACCHARIDE VACCINE C
     Indication: Immunisation
     Dosage: DOSE NUMBER UNKNOWN, SINGLE
     Route: 030
     Dates: start: 20240708, end: 20240708
  2. PRIORIX [Concomitant]
     Active Substance: MEASLES-MUMPS-RUBELLA VIRUS VACCINE
     Indication: Immunisation
     Dosage: DOSE 1, SINGLE
     Dates: start: 20240708, end: 20240708

REACTIONS (2)
  - Needle issue [Unknown]
  - Product leakage [Unknown]

NARRATIVE: CASE EVENT DATE: 20240708
